FAERS Safety Report 21856014 (Version 1)
Quarter: 2023Q1

REPORT INFORMATION
  Report Type: Spontaneous
  Country: TW (occurrence: TW)
  Receive Date: 20230112
  Receipt Date: 20230112
  Transmission Date: 20230418
  Serious: Yes (Other)
  Sender: FDA-Public Use
  Company Number: TW-PINNACLE BIOLOGICS INC-2022-CLI-000027

PATIENT

DRUGS (3)
  1. PHOTOFRIN [Suspect]
     Active Substance: PORFIMER SODIUM
     Indication: Off label use
     Dosage: 2 MG/KG
     Route: 042
  2. Liopidol [Concomitant]
     Indication: Off label use
     Dosage: 5 ML, INJECTED THROUGH THE GUIDE SHEATH CATHETER UNDER IMAGE GUIDANCE.
  3. AMOXICILLIN\CLAVULANATE POTASSIUM [Concomitant]
     Active Substance: AMOXICILLIN\CLAVULANATE POTASSIUM
     Indication: Product used for unknown indication
     Dosage: 1.5 MG, BID
     Route: 048

REACTIONS (2)
  - Neoplasm progression [Unknown]
  - Off label use [Unknown]
